FAERS Safety Report 19038871 (Version 4)
Quarter: 2021Q2

REPORT INFORMATION
  Report Type: Spontaneous
  Country: US (occurrence: US)
  Receive Date: 20210322
  Receipt Date: 20210422
  Transmission Date: 20210717
  Serious: No
  Sender: FDA-Public Use
  Company Number: US-BIOVITRUM-2021US2807

PATIENT
  Sex: Female
  Weight: 4 kg

DRUGS (4)
  1. SYNAGIS [Suspect]
     Active Substance: PALIVIZUMAB
     Indication: ANTIVIRAL PROPHYLAXIS
  2. SYNAGIS [Suspect]
     Active Substance: PALIVIZUMAB
     Indication: PREMATURE BABY
     Dosage: 50MG/0.5ML VL LIQUID
     Route: 030
  3. POLY?VI?SOL WITH IRON [Concomitant]
     Active Substance: IRON\VITAMINS
  4. SYNAGIS [Suspect]
     Active Substance: PALIVIZUMAB
     Indication: PERIVENTRICULAR LEUKOMALACIA

REACTIONS (2)
  - Syringe issue [Unknown]
  - Lethargy [Recovered/Resolved]
